FAERS Safety Report 6924663-1 (Version None)
Quarter: 2010Q3

REPORT INFORMATION
  Report Type: 
  Country: None (occurrence: None)
  Receive Date: 20100816
  Receipt Date: 20100805
  Transmission Date: 20110219
  Serious: No
  Sender: FDA-Public Use
  Company Number: US-BIOGENIDEC-2010BI015559

PATIENT
  Sex: Male

DRUGS (1)
  1. TYSABRI [Suspect]
     Indication: MULTIPLE SCLEROSIS
     Route: 042
     Dates: start: 20091201

REACTIONS (4)
  - INFUSION SITE EXTRAVASATION [None]
  - MULTIPLE SCLEROSIS [None]
  - SENSORY LOSS [None]
  - VESSEL PUNCTURE SITE HAEMORRHAGE [None]
